FAERS Safety Report 16476644 (Version 1)
Quarter: 2019Q2

REPORT INFORMATION
  Report Type: Spontaneous
  Country: ES (occurrence: ES)
  Receive Date: 20190626
  Receipt Date: 20190626
  Transmission Date: 20190711
  Serious: Yes (Other)
  Sender: FDA-Public Use
  Company Number: ES-009507513-1906ESP008014

PATIENT
  Age: 22 Month
  Sex: Male
  Weight: 13.5 kg

DRUGS (2)
  1. SINGULAIR [Suspect]
     Active Substance: MONTELUKAST SODIUM
     Indication: ASTHMA
     Dosage: 1 SACHET EVERY DAY
     Route: 048
     Dates: start: 20190220
  2. FLIXOTIDE [Concomitant]
     Active Substance: FLUTICASONE PROPIONATE
     Indication: ASTHMA
     Dosage: TWO INHALATIONS EVERY 12H
     Route: 055
     Dates: start: 201809

REACTIONS (2)
  - Irritability [Not Recovered/Not Resolved]
  - Morose [Not Recovered/Not Resolved]

NARRATIVE: CASE EVENT DATE: 201902
